FAERS Safety Report 14681545 (Version 1)
Quarter: 2018Q1

REPORT INFORMATION
  Report Type: Spontaneous
  Country: US (occurrence: US)
  Receive Date: 20180326
  Receipt Date: 20180326
  Transmission Date: 20180509
  Serious: No
  Sender: FDA-Public Use
  Company Number: US-KASTLE THERAPEUTICS, LLC-2017KAS000007

PATIENT
  Age: 46 Year
  Sex: Female

DRUGS (3)
  1. KYNAMRO [Suspect]
     Active Substance: MIPOMERSEN SODIUM
     Indication: TYPE IIA HYPERLIPIDAEMIA
     Route: 058
     Dates: start: 20170213, end: 20170510
  2. KYNAMRO [Suspect]
     Active Substance: MIPOMERSEN SODIUM
     Route: 058
     Dates: start: 20171006
  3. KYNAMRO [Suspect]
     Active Substance: MIPOMERSEN SODIUM
     Indication: HYPERCHOLESTEROLAEMIA
     Route: 058
     Dates: start: 20140213

REACTIONS (13)
  - Diarrhoea [Unknown]
  - Nausea [Recovered/Resolved]
  - Vomiting [Unknown]
  - Injection site discharge [Unknown]
  - Injection site irritation [Unknown]
  - Influenza like illness [Not Recovered/Not Resolved]
  - Drug ineffective [Recovered/Resolved]
  - Pain [Unknown]
  - Injection site warmth [Unknown]
  - Injection site mass [Unknown]
  - Injection site scar [Not Recovered/Not Resolved]
  - Hyperhidrosis [Unknown]
  - Injection site erythema [Unknown]

NARRATIVE: CASE EVENT DATE: 2017
